FAERS Safety Report 9937190 (Version 1)
Quarter: 2014Q1

REPORT INFORMATION
  Report Type: Spontaneous
  Country: PL (occurrence: PL)
  Receive Date: 20140301
  Receipt Date: 20140301
  Transmission Date: 20141002
  Serious: No
  Sender: FDA-Public Use
  Company Number: PL-009507513-1402POL012250

PATIENT
  Sex: Male

DRUGS (1)
  1. DIPROGENTA [Suspect]
     Indication: INGROWING NAIL
     Dosage: UNK
     Route: 061
     Dates: start: 201309, end: 201309

REACTIONS (2)
  - Nail operation [Recovered/Resolved]
  - Skin hyperpigmentation [Not Recovered/Not Resolved]
